FAERS Safety Report 8427978-3 (Version None)
Quarter: 2012Q2

REPORT INFORMATION
  Report Type: 
  Country: None (occurrence: None)
  Receive Date: 20120611
  Receipt Date: 20120608
  Transmission Date: 20120825
  Serious: Yes (Other)
  Sender: FDA-Public Use
  Company Number: US-PFIZER INC-2012138795

PATIENT
  Sex: Male
  Weight: 91 kg

DRUGS (3)
  1. PROLIXIN [Concomitant]
     Dosage: UNK
     Route: 040
  2. HYDROCHLOROTHIAZIDE AND LISINOPRIL [Suspect]
     Indication: HYPERTENSION
     Dosage: 20MG/1.5MG,2X/DAY
  3. GEODON [Suspect]
     Dosage: 4 MG, 2X/DAY
     Dates: start: 20060101, end: 20120501

REACTIONS (7)
  - GASTRIC NEOPLASM [None]
  - POLLAKIURIA [None]
  - EXPIRED DRUG ADMINISTERED [None]
  - ABDOMINAL PAIN UPPER [None]
  - ABDOMINAL DISTENSION [None]
  - VISION BLURRED [None]
  - CONSTIPATION [None]
